FAERS Safety Report 10252596 (Version 1)
Quarter: 2014Q2

REPORT INFORMATION
  Report Type: Spontaneous
  Country: CN (occurrence: CN)
  Receive Date: 20140623
  Receipt Date: 20140623
  Transmission Date: 20141212
  Serious: Yes (Hospitalization)
  Sender: FDA-Public Use
  Company Number: CN-B.I. PHARMACEUTICALS,INC./RIDGEFIELD-2014-BI-27690CS

PATIENT
  Age: 78 Year
  Sex: Male
  Weight: 63 kg

DRUGS (2)
  1. ATROVENT [Suspect]
     Indication: WHEEZING
     Dosage: 4 ML
     Route: 055
     Dates: start: 20101019, end: 20131120
  2. PULMICORT [Concomitant]
     Indication: WHEEZING
     Dosage: 6 ML
     Route: 055
     Dates: start: 20131019, end: 20131020

REACTIONS (1)
  - Urinary fistula [Not Recovered/Not Resolved]
